FAERS Safety Report 9806722 (Version 1)
Quarter: 2014Q1

REPORT INFORMATION
  Report Type: Spontaneous
  Country: None (occurrence: US)
  Receive Date: 20140109
  Receipt Date: 20140109
  Transmission Date: 20141002
  Serious: No
  Sender: FDA-Public Use
  Company Number: US-ENDO PHARMACEUTICALS INC.-HCDA20130084

PATIENT
  Sex: Female

DRUGS (2)
  1. HYDROCODONE BITARTRATE / ACETAMINOPHEN ORAL SOLUTION 7.5MG/500MG PER 1 [Suspect]
     Indication: PAIN
     Dosage: UNKNOWN
     Route: 048
  2. HYDROCODONE BITARTRATE / ACETAMINOPHEN ORAL SOLUTION 7.5MG/500MG PER 1 [Suspect]
     Indication: SURGERY

REACTIONS (1)
  - Hypersensitivity [Recovered/Resolved]
